FAERS Safety Report 7675101-5 (Version None)
Quarter: 2011Q3

REPORT INFORMATION
  Report Type: 
  Country: None (occurrence: None)
  Receive Date: 20110810
  Receipt Date: 20110804
  Transmission Date: 20111222
  Serious: Yes (Hospitalization, Disabling)
  Sender: FDA-Public Use
  Company Number: US-MERCK-1105USA02547

PATIENT
  Age: 67 Year
  Sex: Female

DRUGS (7)
  1. FOSAMAX [Suspect]
     Indication: OSTEOPOROSIS
     Route: 048
     Dates: start: 19950101
  2. EVISTA [Concomitant]
     Indication: OSTEOPOROSIS
     Route: 065
     Dates: start: 19950101
  3. FOSAMAX [Suspect]
     Indication: OSTEOPENIA
     Route: 048
     Dates: start: 19950101
  4. LEVOTHYROXINE SODIUM [Concomitant]
     Indication: THYROID DISORDER
     Route: 065
     Dates: start: 19840101
  5. OMEPRAZOLE [Concomitant]
     Indication: GASTROOESOPHAGEAL REFLUX DISEASE
     Route: 065
     Dates: start: 19950101
  6. CALCIUM (UNSPECIFIED) [Concomitant]
     Route: 065
     Dates: start: 19980101
  7. VITAMIN D (UNSPECIFIED) [Concomitant]
     Route: 065
     Dates: start: 19980101

REACTIONS (26)
  - HYPONATRAEMIA [None]
  - RADIUS FRACTURE [None]
  - LOW TURNOVER OSTEOPATHY [None]
  - SCIATICA [None]
  - GAIT DISTURBANCE [None]
  - HYPERLIPIDAEMIA [None]
  - RENAL FAILURE CHRONIC [None]
  - BLADDER PROLAPSE [None]
  - LEUKOCYTOSIS [None]
  - SYNCOPE [None]
  - ORAL DISORDER [None]
  - ADVERSE DRUG REACTION [None]
  - FALL [None]
  - TOOTH DISORDER [None]
  - HIATUS HERNIA [None]
  - SCOLIOSIS [None]
  - WRIST FRACTURE [None]
  - HYPOACUSIS [None]
  - LUNG NEOPLASM [None]
  - ANXIETY [None]
  - CHRONIC OBSTRUCTIVE PULMONARY DISEASE [None]
  - DEPRESSION [None]
  - HIP FRACTURE [None]
  - HYPERTENSION [None]
  - PERIPHERAL VASCULAR DISORDER [None]
  - UTERINE LEIOMYOMA [None]
